FAERS Safety Report 8287620-1 (Version None)
Quarter: 2012Q2

REPORT INFORMATION
  Report Type: 
  Country: None (occurrence: None)
  Receive Date: 20120416
  Receipt Date: 20120410
  Transmission Date: 20120825
  Serious: Yes (Other)
  Sender: FDA-Public Use
  Company Number: PHHY2012CA029884

PATIENT
  Sex: Female

DRUGS (5)
  1. LIPITOR [Concomitant]
     Dosage: 20
  2. ZOLEDRONOC ACID [Suspect]
     Indication: OSTEOPOROSIS
     Dosage: UNK UKN, UNK
     Route: 042
     Dates: start: 20110520
  3. INSULIN [Concomitant]
     Indication: DIABETES MELLITUS
  4. ALTACE [Concomitant]
     Dosage: 10 MG, UNK
  5. ASPIRIN [Concomitant]
     Dosage: 81 MG, UNK

REACTIONS (1)
  - BREAST CANCER [None]
